FAERS Safety Report 7605994-9 (Version None)
Quarter: 2011Q3

REPORT INFORMATION
  Report Type: 
  Country: None (occurrence: None)
  Receive Date: 20110712
  Receipt Date: 20110712
  Transmission Date: 20111222
  Serious: No
  Sender: FDA-Public Use
  Company Number: None

PATIENT
  Sex: Male
  Weight: 83.9154 kg

DRUGS (1)
  1. PROPECIA [Suspect]
     Dates: start: 19970101, end: 19980101

REACTIONS (3)
  - LOSS OF LIBIDO [None]
  - ERECTILE DYSFUNCTION [None]
  - GENITAL HYPOAESTHESIA [None]
